FAERS Safety Report 5157569-1 (Version None)
Quarter: 2006Q4

REPORT INFORMATION
  Report Type: 
  Country: None (occurrence: None)
  Receive Date: 20061127
  Receipt Date: 20061116
  Transmission Date: 20070319
  Serious: Yes (Other)
  Sender: FDA-Public Use
  Company Number: 25403

PATIENT
  Age: 31 Year
  Sex: Female

DRUGS (7)
  1. EPIVIR [Suspect]
     Indication: DRUG USE FOR UNKNOWN INDICATION
  2. DIDANOSINE [Suspect]
     Indication: DRUG USE FOR UNKNOWN INDICATION
     Dates: end: 20040109
  3. NORVIR [Suspect]
     Indication: DRUG USE FOR UNKNOWN INDICATION
  4. FUZEON [Suspect]
     Indication: DRUG USE FOR UNKNOWN INDICATION
     Dosage: 180MG PER DAY
  5. REYATAZ [Suspect]
     Indication: DRUG USE FOR UNKNOWN INDICATION
  6. COTRIM D.S. [Concomitant]
  7. VALGANCYCLOVIR [Concomitant]

REACTIONS (6)
  - ABORTION SPONTANEOUS [None]
  - DRUG EXPOSURE DURING PREGNANCY [None]
  - INTRA-UTERINE DEATH [None]
  - PLACENTAL INFARCTION [None]
  - PREGNANCY [None]
  - UMBILICAL CORD ABNORMALITY [None]
